FAERS Safety Report 8269629 (Version 2)
Quarter: 2013Q2

REPORT INFORMATION
  Report Type: Spontaneous
  Country: US (occurrence: US)
  Receive Date: 20111130
  Receipt Date: 20130410
  Transmission Date: 20140414
  Serious: Yes (Hospitalization)
  Sender: FDA-Public Use
  Company Number: US-BAYER-2011-111441

PATIENT
  Age: 47 Year
  Sex: Female
  Weight: 63.49 kg

DRUGS (3)
  1. YASMIN [Suspect]
     Indication: CONTRACEPTION
     Dosage: UNK
     Dates: start: 20040308, end: 200507
  2. YASMIN [Suspect]
     Indication: MENORRHAGIA
  3. ASPIRIN [Concomitant]
     Dosage: UNK
     Dates: start: 2006

REACTIONS (5)
  - Intracranial venous sinus thrombosis [None]
  - Headache [None]
  - Injury [None]
  - Pain [None]
  - Emotional distress [None]
